FAERS Safety Report 20458688 (Version 6)
Quarter: 2022Q4

REPORT INFORMATION
  Report Type: Spontaneous
  Country: US (occurrence: US)
  Receive Date: 20220211
  Receipt Date: 20221005
  Transmission Date: 20230112
  Serious: No
  Sender: FDA-Public Use
  Company Number: US-BRISTOL-MYERS SQUIBB COMPANY-BMS-2022-015059

PATIENT
  Age: 59 Year
  Sex: Female

DRUGS (3)
  1. SPRYCEL [Suspect]
     Active Substance: DASATINIB
     Indication: Chronic myeloid leukaemia
     Route: 048
     Dates: start: 20211218
  2. SPRYCEL [Suspect]
     Active Substance: DASATINIB
     Route: 048
  3. SPRYCEL [Suspect]
     Active Substance: DASATINIB
     Route: 065

REACTIONS (20)
  - Gastritis [Unknown]
  - Hot flush [Unknown]
  - Fatigue [Unknown]
  - Nausea [Unknown]
  - Dizziness [Unknown]
  - Asthenia [Unknown]
  - Myalgia [Unknown]
  - Cardiac disorder [Unknown]
  - Rash pruritic [Unknown]
  - Hypoacusis [Unknown]
  - Visual impairment [Unknown]
  - Vision blurred [Unknown]
  - Abdominal pain upper [Unknown]
  - Acne [Unknown]
  - Depression [Unknown]
  - Gastrooesophageal reflux disease [Unknown]
  - Pruritus [Unknown]
  - Dyspepsia [Unknown]
  - Swelling face [Unknown]
  - Abdominal discomfort [Unknown]
